FAERS Safety Report 21913614 (Version 1)
Quarter: 2023Q1

REPORT INFORMATION
  Report Type: Spontaneous
  Country: US (occurrence: US)
  Receive Date: 20230125
  Receipt Date: 20230125
  Transmission Date: 20230418
  Serious: No
  Sender: FDA-Public Use
  Company Number: US-ALLERGAN-2217131US

PATIENT
  Sex: Male

DRUGS (5)
  1. BOTOX COSMETIC [Suspect]
     Active Substance: ONABOTULINUMTOXINA
     Indication: Skin wrinkling
     Dosage: 14 UNK, SINGLE
     Dates: start: 20220519, end: 20220519
  2. BOTOX COSMETIC [Suspect]
     Active Substance: ONABOTULINUMTOXINA
     Indication: Skin wrinkling
     Dosage: 20 UNITS, SINGLE
     Dates: start: 20220519, end: 20220519
  3. ACYCLOVIR [Concomitant]
     Active Substance: ACYCLOVIR
     Indication: Herpes virus infection
  4. COVID-19 VACCINE [Concomitant]
     Dosage: UNK UNK, SINGLE (BOOSTER VACCINATION)
     Dates: start: 202203, end: 202203
  5. Unknown antiviral [Concomitant]
     Dosage: UNK
     Dates: start: 202205

REACTIONS (4)
  - Product preparation error [Unknown]
  - Hypoaesthesia [Not Recovered/Not Resolved]
  - Bell^s palsy [Unknown]
  - Facial paresis [Not Recovered/Not Resolved]

NARRATIVE: CASE EVENT DATE: 20220520
